FAERS Safety Report 7813324-2 (Version None)
Quarter: 2011Q4

REPORT INFORMATION
  Report Type: 
  Country: None (occurrence: None)
  Receive Date: 20111013
  Receipt Date: 20111004
  Transmission Date: 20120403
  Serious: Yes (Other)
  Sender: FDA-Public Use
  Company Number: US-ASTRAZENECA-2011SE59735

PATIENT
  Age: 43 Year
  Sex: Female

DRUGS (1)
  1. NEXIUM [Suspect]
     Dosage: TOTAL DAILY DOSE: 40 MG.
     Route: 048

REACTIONS (1)
  - THROAT CANCER [None]
